FAERS Safety Report 20993066 (Version 1)
Quarter: 2022Q2

REPORT INFORMATION
  Report Type: Spontaneous
  Country: US (occurrence: None)
  Receive Date: 20220621
  Receipt Date: 20220621
  Transmission Date: 20220721
  Serious: No
  Sender: FDA-Public Use
  Company Number: None

PATIENT
  Age: 25 Year
  Sex: Female
  Weight: 60.75 kg

DRUGS (5)
  1. OMEPRAZOLE [Suspect]
     Active Substance: OMEPRAZOLE
     Indication: Gastrooesophageal reflux disease
     Dosage: OTHER QUANTITY : 1 CAPSULE(S);?
     Route: 048
     Dates: start: 20220316
  2. MIRTAZAPINE [Concomitant]
     Active Substance: MIRTAZAPINE
  3. MIRENA [Concomitant]
     Active Substance: LEVONORGESTREL
  4. VITAMIN D [Concomitant]
     Active Substance: VITAMIN D NOS
  5. PROBIOTICS [Concomitant]

REACTIONS (5)
  - Menstruation delayed [None]
  - Heavy menstrual bleeding [None]
  - Menstruation irregular [None]
  - Menstrual disorder [None]
  - Nausea [None]

NARRATIVE: CASE EVENT DATE: 20220415
